FAERS Safety Report 4863772-8 (Version None)
Quarter: 2005Q4

REPORT INFORMATION
  Report Type: 
  Country: None (occurrence: None)
  Receive Date: 20051222
  Receipt Date: 20050812
  Transmission Date: 20060501
  Serious: No
  Sender: FDA-Public Use
  Company Number: US-GLAXOSMITHKLINE-A0570066A

PATIENT
  Age: 60 Year
  Sex: Female

DRUGS (10)
  1. FLONASE [Suspect]
     Dosage: 1SPR TWICE PER DAY
     Route: 045
     Dates: start: 20050812
  2. METOPROLOL [Concomitant]
  3. CALMATEL [Concomitant]
  4. CARDIZEM [Concomitant]
  5. ZETIA [Concomitant]
  6. LISINOPRIL [Concomitant]
  7. COUMADIN [Concomitant]
  8. LIPITOR [Concomitant]
  9. PRILOSEC [Concomitant]
  10. FOSAMAX [Concomitant]

REACTIONS (1)
  - HEADACHE [None]
